FAERS Safety Report 7692673-5 (Version None)
Quarter: 2011Q3

REPORT INFORMATION
  Report Type: 
  Country: None (occurrence: None)
  Receive Date: 20110819
  Receipt Date: 20110805
  Transmission Date: 20111222
  Serious: Yes (Hospitalization)
  Sender: FDA-Public Use
  Company Number: US-CELGENEUS-163-20785-11071874

PATIENT
  Sex: Male

DRUGS (16)
  1. NORVASC [Concomitant]
     Dosage: 5 MILLIGRAM
     Route: 065
  2. THALOMID [Suspect]
     Indication: MULTIPLE MYELOMA
     Dosage: 100 MILLIGRAM
     Route: 048
     Dates: start: 20101118
  3. LASIX [Concomitant]
     Indication: SWELLING
     Dosage: 40 MILLIGRAM
     Route: 065
  4. CALCIUM CARBONATE [Concomitant]
     Route: 065
  5. CIPROFLOXACIN [Concomitant]
     Route: 065
  6. ADVAIR DISKUS 100/50 [Concomitant]
     Route: 065
  7. NITROSTAT [Concomitant]
     Route: 065
  8. NYSTATIN [Concomitant]
     Route: 065
  9. COMPAZINE [Concomitant]
     Route: 065
  10. NEXIUM [Concomitant]
     Route: 065
  11. POTASSIUM [Concomitant]
     Route: 065
  12. SENOKOT [Concomitant]
     Route: 065
  13. DOXYCYCLINE [Concomitant]
     Route: 065
  14. SPIRIVA [Concomitant]
     Route: 065
  15. COUMADIN [Concomitant]
     Route: 065
  16. OMEPRAZOLE [Concomitant]
     Dosage: 20 MILLIGRAM
     Route: 065

REACTIONS (3)
  - PATHOLOGICAL FRACTURE [None]
  - PAIN IN EXTREMITY [None]
  - OEDEMA PERIPHERAL [None]
